FAERS Safety Report 4364640-0 (Version None)
Quarter: 2004Q2

REPORT INFORMATION
  Report Type: 
  Country: None (occurrence: None)
  Receive Date: 20040521
  Receipt Date: 20040504
  Transmission Date: 20050107
  Serious: Yes (Hospitalization, Other)
  Sender: FDA-Public Use
  Company Number: USA040362831

PATIENT
  Age: 7 Year
  Sex: Female

DRUGS (4)
  1. HUMATROPE [Suspect]
     Indication: BODY HEIGHT BELOW NORMAL
     Dates: start: 20031001
  2. SEROQUEL [Concomitant]
  3. RITALIN [Concomitant]
  4. ABILIFY [Concomitant]

REACTIONS (3)
  - AGGRESSION [None]
  - HOMICIDAL IDEATION [None]
  - PHARMACEUTICAL PRODUCT COMPLAINT [None]
